FAERS Safety Report 19457630 (Version 1)
Quarter: 2021Q2

REPORT INFORMATION
  Report Type: Spontaneous
  Country: SA (occurrence: SA)
  Receive Date: 20210624
  Receipt Date: 20210624
  Transmission Date: 20210717
  Serious: Yes (Death, Other)
  Sender: FDA-Public Use
  Company Number: SA-BIOVITRUM-2021SA6420

PATIENT
  Age: 31 Month
  Sex: Female

DRUGS (1)
  1. EMAPALUMAB [Suspect]
     Active Substance: EMAPALUMAB
     Indication: FAMILIAL HAEMOPHAGOCYTIC LYMPHOHISTIOCYTOSIS
     Route: 042
     Dates: start: 20210601, end: 20210621

REACTIONS (2)
  - Haemophagocytic lymphohistiocytosis [Fatal]
  - Gastrointestinal haemorrhage [Unknown]
